FAERS Safety Report 15948586 (Version 2)
Quarter: 2019Q2

REPORT INFORMATION
  Report Type: Spontaneous
  Country: FR (occurrence: FR)
  Receive Date: 20190212
  Receipt Date: 20190423
  Transmission Date: 20190711
  Serious: Yes (Other)
  Sender: FDA-Public Use
  Company Number: FR-ASTELLAS-2019US005574

PATIENT
  Age: 68 Year
  Sex: Male

DRUGS (4)
  1. XTANDI [Suspect]
     Active Substance: ENZALUTAMIDE
     Indication: PROSTATE CANCER
     Route: 065
     Dates: start: 20190111, end: 20190215
  2. CERIS [Concomitant]
     Active Substance: TROSPIUM CHLORIDE
     Indication: MICTURITION URGENCY
     Dosage: 1X2, TWICE DAILY
     Route: 065
     Dates: start: 2016
  3. OXYCODONE [Concomitant]
     Active Substance: OXYCODONE
     Indication: PAIN
     Dosage: 30 MG, ONE TWICE DAILY
     Route: 065
     Dates: start: 20181020
  4. ZOLADEX [Concomitant]
     Active Substance: GOSERELIN ACETATE
     Indication: PROSTATE CANCER
     Dosage: 10.8 MG, QUARTERLY
     Route: 065
     Dates: start: 2015

REACTIONS (2)
  - Atrioventricular block complete [Unknown]
  - Electrocardiogram QT prolonged [Not Recovered/Not Resolved]

NARRATIVE: CASE EVENT DATE: 20190111
